FAERS Safety Report 25139491 (Version 2)
Quarter: 2025Q4

REPORT INFORMATION
  Report Type: Report from Study
  Country: US (occurrence: US)
  Receive Date: 20250331
  Receipt Date: 20251003
  Transmission Date: 20260118
  Serious: Yes (Hospitalization)
  Sender: RECORDATI
  Company Number: US-ORPHANEU-2025002109

PATIENT
  Sex: Male
  Weight: 9.977 kg

DRUGS (2)
  1. CARBAGLU [Suspect]
     Active Substance: CARGLUMIC ACID
     Indication: Product used for unknown indication
     Dosage: 1.5 TABLET IN 2.5 ML OF WATER PER TABLET, QID (1200 MG/DAY), TAKE IMMEDIATELY BEFORE MEALS OR FEEDIN
     Dates: start: 202503, end: 2025
  2. CARBAGLU [Suspect]
     Active Substance: CARGLUMIC ACID
     Dosage: 1600 MG, DAILY
     Dates: start: 2025

REACTIONS (1)
  - Cardiac failure [Recovering/Resolving]
